FAERS Safety Report 8463295 (Version 2)
Quarter: 2013Q2

REPORT INFORMATION
  Report Type: Spontaneous
  Country: GB (occurrence: GB)
  Receive Date: 20120316
  Receipt Date: 20130422
  Transmission Date: 20140414
  Serious: Yes (Other)
  Sender: FDA-Public Use
  Company Number: GB-ROCHE-1041502

PATIENT
  Age: 18 Year
  Sex: Female

DRUGS (2)
  1. XENICAL [Suspect]
     Indication: PRODUCT USED FOR UNKNOWN INDICATION
     Route: 048
  2. ETONOGESTREL [Interacting]
     Indication: CONTRACEPTION
     Dosage: PL 00065/0161 NEXPLANON IMPLANT FOR SUBDERMAL
     Route: 059

REACTIONS (2)
  - Pregnancy with implant contraceptive [Unknown]
  - Drug interaction [Unknown]
